FAERS Safety Report 8036472-3 (Version None)
Quarter: 2012Q1

REPORT INFORMATION
  Report Type: 
  Country: None (occurrence: None)
  Receive Date: 20120106
  Receipt Date: 20111222
  Transmission Date: 20120608
  Serious: Yes (Life-Threatening, Hospitalization, Other)
  Sender: FDA-Public Use
  Company Number: ADR-2011-11325

PATIENT
  Age: 14 Year
  Sex: Female

DRUGS (2)
  1. LIORESAL [Suspect]
     Indication: MUSCLE SPASTICITY
     Dosage: 398.2 MCG, DAILY, INTRA
     Route: 037
  2. LIORESAL [Suspect]
     Indication: CEREBRAL PALSY
     Dosage: 398.2 MCG, DAILY, INTRA
     Route: 037

REACTIONS (10)
  - PRURITUS [None]
  - SKIN DISCOLOURATION [None]
  - MENTAL STATUS CHANGES [None]
  - DEVICE MALFUNCTION [None]
  - MUSCLE SPASTICITY [None]
  - HYPERHIDROSIS [None]
  - COLD SWEAT [None]
  - DEVICE LEAKAGE [None]
  - WITHDRAWAL SYNDROME [None]
  - CONDITION AGGRAVATED [None]
